FAERS Safety Report 18378346 (Version 1)
Quarter: 2020Q4

REPORT INFORMATION
  Report Type: Spontaneous
  Country: US (occurrence: US)
  Receive Date: 20201013
  Receipt Date: 20201013
  Transmission Date: 20210114
  Serious: Yes (Hospitalization, Other)
  Sender: FDA-Public Use
  Company Number: US-VERTEX PHARMACEUTICALS-2020-019853

PATIENT
  Age: 33 Year
  Sex: Male

DRUGS (1)
  1. TRIKAFTA [Suspect]
     Active Substance: ELEXACAFTOR\IVACAFTOR\TEZACAFTOR
     Indication: CYSTIC FIBROSIS
     Dosage: 100MG ELEXACAFTOR/ 50MG TEZACAFTOR/ 75MG IVACAFTOR AND 150MG IVACAFTOR AT UNK FREQ
     Route: 048

REACTIONS (7)
  - Craniocerebral injury [Unknown]
  - Mania [Unknown]
  - Impulsive behaviour [Unknown]
  - Feeling abnormal [Unknown]
  - Euphoric mood [Unknown]
  - Depression [Unknown]
  - Suicide attempt [Unknown]
